FAERS Safety Report 18989543 (Version 1)
Quarter: 2021Q1

REPORT INFORMATION
  Report Type: Report from Study
  Country: US (occurrence: US)
  Receive Date: 20210309
  Receipt Date: 20210309
  Transmission Date: 20210420
  Serious: Yes (Hospitalization)
  Sender: FDA-Public Use
  Company Number: US-BAUSCH-BL-2021-007745

PATIENT
  Age: 42 Year
  Sex: Male
  Weight: 115.77 kg

DRUGS (8)
  1. BUMEX [Concomitant]
     Active Substance: BUMETANIDE
     Dosage: AS DIRECTED
     Route: 048
  2. XIFAXAN [Suspect]
     Active Substance: RIFAXIMIN
     Indication: HEPATIC CIRRHOSIS
     Dosage: START DATE: APPROXIMATELY 2.5 YEARS AGO?STOP DATE: PAST COUPLE OF WEEKS
     Route: 048
     Dates: start: 2018, end: 202102
  3. BUMEX [Concomitant]
     Active Substance: BUMETANIDE
     Indication: PRODUCT USED FOR UNKNOWN INDICATION
     Route: 048
  4. ZOFRAN [Concomitant]
     Active Substance: ONDANSETRON HYDROCHLORIDE
     Indication: PRODUCT USED FOR UNKNOWN INDICATION
     Dosage: AS NEEDED
     Route: 048
  5. LACTULOSE. [Concomitant]
     Active Substance: LACTULOSE
     Indication: PRODUCT USED FOR UNKNOWN INDICATION
     Route: 048
  6. LACTULOSE. [Concomitant]
     Active Substance: LACTULOSE
     Dosage: AS DIRECTED
     Route: 048
  7. GABAPENTIN. [Concomitant]
     Active Substance: GABAPENTIN
     Indication: PRODUCT USED FOR UNKNOWN INDICATION
     Route: 048
  8. INSULIN [Concomitant]
     Active Substance: INSULIN NOS
     Indication: PRODUCT USED FOR UNKNOWN INDICATION
     Dosage: 70/30 AS DIRECTED
     Route: 058

REACTIONS (6)
  - Hospitalisation [Unknown]
  - Ammonia increased [Unknown]
  - Dizziness [Unknown]
  - Vomiting [Unknown]
  - Therapy interrupted [Unknown]
  - Coma [Recovered/Resolved]

NARRATIVE: CASE EVENT DATE: 202102
